FAERS Safety Report 7506543-6 (Version None)
Quarter: 2011Q2

REPORT INFORMATION
  Report Type: 
  Country: None (occurrence: None)
  Receive Date: 20110526
  Receipt Date: 20110519
  Transmission Date: 20111010
  Serious: Yes (Hospitalization)
  Sender: FDA-Public Use
  Company Number: US-MERCK-1105USA03192

PATIENT
  Age: 60 Year
  Sex: Female

DRUGS (2)
  1. SODIUM CHLORIDE [Concomitant]
     Route: 065
     Dates: start: 20110517
  2. IVEMEND [Suspect]
     Indication: PROPHYLAXIS OF NAUSEA AND VOMITING
     Dosage: 150MG OVER 30MINUTES
     Route: 042
     Dates: start: 20110517, end: 20110517

REACTIONS (5)
  - HYPERHIDROSIS [None]
  - CHEST PAIN [None]
  - THROAT TIGHTNESS [None]
  - FLUSHING [None]
  - BACK PAIN [None]
